FAERS Safety Report 7032080-1 (Version None)
Quarter: 2010Q4

REPORT INFORMATION
  Report Type: 
  Country: None (occurrence: None)
  Receive Date: 20101007
  Receipt Date: 20091204
  Transmission Date: 20110411
  Serious: No
  Sender: FDA-Public Use
  Company Number: US-KINGPHARMUSA00001-K200901538

PATIENT
  Age: 78 Year
  Sex: Male
  Weight: 74.83 kg

DRUGS (4)
  1. SONATA [Suspect]
     Indication: SLEEP DISORDER
     Dosage: 5 MG, SINGLE
     Route: 048
     Dates: start: 20090901, end: 20090901
  2. GLIMEPIRIDE [Concomitant]
     Indication: DIABETES MELLITUS
  3. FUROSEMIDE [Concomitant]
     Indication: CARDIAC FAILURE
     Dosage: TWO 40 MG TABLETS, QD
  4. CARVEDILOL [Concomitant]
     Dosage: 12.5 MG, BID

REACTIONS (1)
  - DRUG INEFFECTIVE [None]
